FAERS Safety Report 6901331-3 (Version None)
Quarter: 2010Q3

REPORT INFORMATION
  Report Type: 
  Country: None (occurrence: None)
  Receive Date: 20100803
  Receipt Date: 20080115
  Transmission Date: 20110219
  Serious: No
  Sender: FDA-Public Use
  Company Number: US-PFIZER INC-2008004944

PATIENT
  Sex: Male
  Weight: 79.5 kg

DRUGS (4)
  1. LYRICA [Suspect]
     Indication: SCIATICA
     Dates: start: 20080114
  2. LYRICA [Suspect]
     Indication: HYPOAESTHESIA
  3. NORVASC [Concomitant]
     Indication: HYPERTENSION
  4. ZOCOR [Concomitant]
     Indication: BLOOD CHOLESTEROL INCREASED

REACTIONS (2)
  - HEADACHE [None]
  - SOMNOLENCE [None]
